FAERS Safety Report 14512478 (Version 1)
Quarter: 2018Q1

REPORT INFORMATION
  Report Type: Spontaneous
  Country: US (occurrence: US)
  Receive Date: 20180209
  Receipt Date: 20180209
  Transmission Date: 20180509
  Serious: No
  Sender: FDA-Public Use
  Company Number: US-ALLERGAN-1715527US

PATIENT
  Sex: Female

DRUGS (2)
  1. RESTASIS [Suspect]
     Active Substance: CYCLOSPORINE
     Indication: DRY EYE
     Dosage: 2 GTT, BID
     Route: 047
     Dates: start: 2008
  2. GENTEAL MILD [Concomitant]
     Active Substance: HYPROMELLOSE 2910 (4000 MPA.S)
     Dosage: UNK
     Route: 047

REACTIONS (12)
  - Insomnia [Not Recovered/Not Resolved]
  - Inappropriate schedule of drug administration [Unknown]
  - Visual impairment [Unknown]
  - Eye pain [Not Recovered/Not Resolved]
  - Cataract [Unknown]
  - Eye disorder [Unknown]
  - Condition aggravated [Not Recovered/Not Resolved]
  - Product storage error [Unknown]
  - Eye discharge [Unknown]
  - Drug ineffective [Unknown]
  - Photophobia [Not Recovered/Not Resolved]
  - Eye irritation [Recovering/Resolving]

NARRATIVE: CASE EVENT DATE: 2008
